FAERS Safety Report 18740581 (Version 1)
Quarter: 2021Q1

REPORT INFORMATION
  Report Type: Spontaneous
  Country: US (occurrence: US)
  Receive Date: 20210114
  Receipt Date: 20210114
  Transmission Date: 20210419
  Serious: Yes (Life-Threatening, Hospitalization, Other)
  Sender: FDA-Public Use
  Company Number: US-SUN PHARMACEUTICAL INDUSTRIES LTD-2020R1-274921

PATIENT
  Age: 48 Year
  Sex: Female

DRUGS (1)
  1. IBUPROFEN. [Suspect]
     Active Substance: IBUPROFEN
     Indication: ARTHRALGIA
     Dosage: 4 GRAM, DAILY
     Route: 065

REACTIONS (4)
  - Hypophosphataemia [Unknown]
  - Renal tubular acidosis [Unknown]
  - Rhabdomyolysis [Unknown]
  - Hypokalaemia [Unknown]
